FAERS Safety Report 8430434-X (Version None)
Quarter: 2012Q2

REPORT INFORMATION
  Report Type: 
  Country: None (occurrence: None)
  Receive Date: 20120612
  Receipt Date: 20120605
  Transmission Date: 20120825
  Serious: No
  Sender: FDA-Public Use
  Company Number: US-PFIZER INC-2012111187

PATIENT

DRUGS (6)
  1. PRISTIQ [Suspect]
     Dosage: 25 MG, EVERY OTHER DAY
  2. PRISTIQ [Suspect]
     Dosage: 50 MG, DAILY
  3. PRISTIQ [Suspect]
     Dosage: 25 MG, EVERY 3 DAYS
  4. PRISTIQ [Suspect]
     Dosage: 50 MG, UNK
  5. PRISTIQ [Suspect]
     Dosage: 50 MG, EVERY OTHER DAY
  6. PRISTIQ [Suspect]
     Dosage: 25 MG, DAILY

REACTIONS (10)
  - DIZZINESS [None]
  - NAUSEA [None]
  - ACTIVITIES OF DAILY LIVING IMPAIRED [None]
  - MENTAL STATUS CHANGES [None]
  - BALANCE DISORDER [None]
  - HYPOAESTHESIA [None]
  - FEELING ABNORMAL [None]
  - EMOTIONAL POVERTY [None]
  - FEAR [None]
  - QUALITY OF LIFE DECREASED [None]
